FAERS Safety Report 6996559-0 (Version None)
Quarter: 2010Q3

REPORT INFORMATION
  Report Type: 
  Country: None (occurrence: None)
  Receive Date: 20100918
  Receipt Date: 20090521
  Transmission Date: 20110219
  Serious: No
  Sender: FDA-Public Use
  Company Number: US-WYE-H08875009

PATIENT

DRUGS (4)
  1. ALAVERT [Suspect]
     Indication: SNEEZING
     Dosage: UNKNOWN
     Route: 048
  2. ALAVERT [Suspect]
     Indication: RHINORRHOEA
  3. ALAVERT [Suspect]
     Indication: EYE PRURITUS
  4. ALAVERT [Suspect]
     Indication: LACRIMATION INCREASED

REACTIONS (2)
  - DRUG INEFFECTIVE [None]
  - PRODUCT QUALITY ISSUE [None]
